FAERS Safety Report 24919176 (Version 1)
Quarter: 2025Q1

REPORT INFORMATION
  Report Type: Spontaneous
  Country: FR (occurrence: FR)
  Receive Date: 20250204
  Receipt Date: 20250204
  Transmission Date: 20250408
  Serious: Yes (Death, Other)
  Sender: AMGEN
  Company Number: FR-AMGEN-FRASP2025019182

PATIENT

DRUGS (2)
  1. ADALIMUMAB [Suspect]
     Active Substance: ADALIMUMAB
     Indication: Connective tissue disorder
     Route: 065
  2. ADALIMUMAB [Suspect]
     Active Substance: ADALIMUMAB
     Indication: Interstitial lung disease

REACTIONS (10)
  - Septic shock [Fatal]
  - Lymphoma [Fatal]
  - Interstitial lung disease [Unknown]
  - Acute respiratory distress syndrome [Fatal]
  - Haemophagocytic lymphohistiocytosis [Fatal]
  - Death [Fatal]
  - Drug effective for unapproved indication [Unknown]
  - Pulmonary hypertension [Unknown]
  - Connective tissue disorder [Unknown]
  - Off label use [Unknown]
